FAERS Safety Report 8882040 (Version 8)
Quarter: 2013Q3

REPORT INFORMATION
  Report Type: Report from Study
  Country: AU (occurrence: AU)
  Receive Date: 20121105
  Receipt Date: 20130813
  Transmission Date: 20140515
  Serious: Yes (Other)
  Sender: FDA-Public Use
  Company Number: AU-BRISTOL-MYERS SQUIBB COMPANY-16666877

PATIENT
  Age: 54 Year
  Sex: Female
  Weight: 61 kg

DRUGS (15)
  1. ORENCIA [Suspect]
     Indication: RHEUMATOID ARTHRITIS
     Dosage: MONTHLY?EXP DATE: JUN15
     Route: 042
     Dates: start: 20120323
  2. PREDNISONE [Suspect]
     Dosage: WHEN NECESSARY
     Route: 048
  3. METHOTREXATE [Suspect]
     Dosage: INJECTION
     Route: 030
  4. PREDNISOLONE [Suspect]
     Dosage: 7.5 MG/DAY
     Route: 048
  5. FOLIC ACID [Concomitant]
     Dosage: 6 DAY/WEEK
     Route: 048
  6. DOTHEP [Concomitant]
     Route: 048
  7. OXYNORM [Concomitant]
     Route: 048
  8. SIFROL [Concomitant]
  9. MOTILIUM [Concomitant]
  10. VITAMIN B12 [Concomitant]
  11. OXAZEPAM [Concomitant]
  12. SERETIDE [Concomitant]
  13. NEXIUM [Concomitant]
  14. BACTROBAN OINTMENT [Concomitant]
  15. ASPIRIN [Concomitant]

REACTIONS (10)
  - Squamous cell carcinoma [Unknown]
  - Kidney infection [Recovering/Resolving]
  - Lower respiratory tract infection [Unknown]
  - Vasculitis [Unknown]
  - Urinary tract infection [Unknown]
  - Gastric disorder [Unknown]
  - Cough [Unknown]
  - Abdominal pain [Recovering/Resolving]
  - Vomiting [Recovering/Resolving]
  - Diarrhoea [Recovering/Resolving]
